FAERS Safety Report 10083461 (Version 1)
Quarter: 2014Q2

REPORT INFORMATION
  Report Type: Spontaneous
  Country: NO (occurrence: NO)
  Receive Date: 20140417
  Receipt Date: 20140417
  Transmission Date: 20141212
  Serious: Yes (Death, Life-Threatening, Other)
  Sender: FDA-Public Use
  Company Number: NO-ASTRAZENECA-2014SE26007

PATIENT
  Age: 74 Year
  Sex: Male
  Weight: 79 kg

DRUGS (14)
  1. BRILIQUE [Suspect]
     Indication: THROMBOSIS PROPHYLAXIS
     Route: 048
     Dates: start: 20140316, end: 20140320
  2. PLAVIX [Suspect]
     Indication: THROMBOSIS PROPHYLAXIS
     Dosage: BOLUS DOSE 300 MG
     Route: 048
  3. PLAVIX [Suspect]
     Indication: THROMBOSIS PROPHYLAXIS
     Route: 048
     Dates: start: 20140324, end: 20140327
  4. GLIBENCLAMIDE [Concomitant]
     Dates: end: 20140328
  5. METFORMIN [Concomitant]
     Dates: end: 20140328
  6. METOPROLOL [Concomitant]
     Route: 048
     Dates: end: 20140328
  7. ATACAND PLUS [Concomitant]
     Dosage: 1 DF DAILY, 16/12,5 MG X 2
     Route: 048
     Dates: end: 20140328
  8. SIMVASTATIN [Concomitant]
     Dates: end: 20140328
  9. AMLODIPINE [Concomitant]
     Dates: end: 20140328
  10. METRONIDAZOLE [Concomitant]
     Dates: start: 20140328, end: 20140328
  11. BENZYLPENICILLIN [Concomitant]
     Dates: start: 20140328, end: 20140328
  12. NEXIUM [Concomitant]
     Route: 048
     Dates: end: 20140328
  13. KEPPRA [Concomitant]
     Dates: start: 20140327, end: 20140328
  14. ALBYL-E [Concomitant]
     Indication: THROMBOSIS PROPHYLAXIS
     Route: 048
     Dates: start: 20140316, end: 20140327

REACTIONS (6)
  - Cerebral haemorrhage [Fatal]
  - Disseminated intravascular coagulation [Fatal]
  - Thrombotic cerebral infarction [Not Recovered/Not Resolved]
  - Haemorrhagic cerebral infarction [Not Recovered/Not Resolved]
  - Pyrexia [Unknown]
  - C-reactive protein increased [Unknown]
